FAERS Safety Report 8936573 (Version 1)
Quarter: 2012Q4

REPORT INFORMATION
  Report Type: 
  Country: TH (occurrence: TH)
  Receive Date: 20121130
  Receipt Date: 20121130
  Transmission Date: 20130627
  Serious: Yes (Death, Hospitalization)
  Sender: FDA-Public Use
  Company Number: TH-WATSON-2012-20810

PATIENT
  Age: 15 Year
  Sex: Female

DRUGS (3)
  1. MYCOPHENOLATE MOFETIL (UNKNOWN) [Suspect]
     Indication: IMMUNOSUPPRESSANT DRUG THERAPY
     Dosage: UNK, unknown
     Route: 065
  2. TACROLIMUS (UNKNOWN) [Suspect]
     Indication: IMMUNOSUPPRESSANT DRUG THERAPY
     Dosage: UNK, unknown
     Route: 065
  3. PREDNISOLONE (UNKNOWN) [Suspect]
     Indication: IMMUNOSUPPRESSANT DRUG THERAPY
     Dosage: UNK, unknown
     Route: 065

REACTIONS (1)
  - Histoplasmosis disseminated [Fatal]
